FAERS Safety Report 17144433 (Version 2)
Quarter: 2020Q1

REPORT INFORMATION
  Report Type: Spontaneous
  Country: US (occurrence: US)
  Receive Date: 20191212
  Receipt Date: 20200205
  Transmission Date: 20200409
  Serious: No
  Sender: FDA-Public Use
  Company Number: US-PFIZER INC-2019533721

PATIENT
  Age: 64 Year
  Sex: Female

DRUGS (1)
  1. INLYTA [Suspect]
     Active Substance: AXITINIB
     Indication: RENAL CANCER
     Dosage: 5 MG, 2X/DAY (1 TABLET BY MOUTH TWICE DAILY)
     Route: 048
     Dates: start: 201911

REACTIONS (6)
  - Fatigue [Unknown]
  - Tremor [Unknown]
  - Blood pressure increased [Unknown]
  - Palpitations [Unknown]
  - Constipation [Unknown]
  - Weight increased [Unknown]

NARRATIVE: CASE EVENT DATE: 2019
